FAERS Safety Report 4653105-4 (Version None)
Quarter: 2005Q2

REPORT INFORMATION
  Report Type: 
  Country: None (occurrence: None)
  Receive Date: 20050502
  Receipt Date: 20050502
  Transmission Date: 20051028
  Serious: No
  Sender: FDA-Public Use
  Company Number: None

PATIENT
  Age: 32 Year
  Sex: Female
  Weight: 79.3795 kg

DRUGS (2)
  1. CITALOPRAM   20MG   FORREST PHARMACUTICALS [Suspect]
     Indication: ANXIETY
     Dosage: 20 MG   MOUTH   ORAL
     Route: 048
     Dates: start: 20050401, end: 20050501
  2. CITALOPRAM   20MG   FORREST PHARMACUTICALS [Suspect]
     Indication: DEPRESSION
     Dosage: 20 MG   MOUTH   ORAL
     Route: 048
     Dates: start: 20050401, end: 20050501

REACTIONS (2)
  - PHARMACEUTICAL PRODUCT COMPLAINT [None]
  - THERAPEUTIC PRODUCT INEFFECTIVE [None]
